FAERS Safety Report 7527334-6 (Version None)
Quarter: 2011Q2

REPORT INFORMATION
  Report Type: 
  Country: None (occurrence: None)
  Receive Date: 20110607
  Receipt Date: 20090606
  Transmission Date: 20111010
  Serious: Yes (Hospitalization, Other)
  Sender: FDA-Public Use
  Company Number: US-BAYER-200922414NA

PATIENT
  Age: 81 Year
  Sex: Male
  Weight: 63 kg

DRUGS (10)
  1. LEVOPHED [Concomitant]
     Dosage: TITRATE
     Route: 042
     Dates: start: 20050207, end: 20050211
  2. NAPROXEN [Concomitant]
     Indication: PAIN
     Dosage: AS NEEDED
     Route: 048
  3. POTASSIUM CHLORIDE [Concomitant]
     Dosage: 15 MEQ, UNK
     Dates: start: 20050207, end: 20050207
  4. FENTANYL [Concomitant]
     Dosage: 25MCG
     Route: 042
     Dates: start: 20050207, end: 20050207
  5. TRASYLOL [Suspect]
     Indication: AORTIC VALVE REPLACEMENT
     Dosage: 1 ML, 200ML, 50ML/HR INFUSION
     Route: 042
     Dates: start: 20050207, end: 20050207
  6. TRASYLOL [Suspect]
     Indication: CORONARY ARTERY BYPASS
  7. HEPARIN [Concomitant]
     Dosage: 49 ML,PUMP PRIME
     Route: 042
     Dates: start: 20050207, end: 20050207
  8. RED BLOOD CELLS [Concomitant]
     Dosage: 1 U, UNK
     Route: 042
     Dates: start: 20050207, end: 20050207
  9. ALBUTEROL SULFATE AUTOHALER [Concomitant]
     Dosage: 0.83 MG, UNK
     Route: 048
  10. LIPITOR [Concomitant]
     Indication: BLOOD CHOLESTEROL INCREASED
     Dosage: 10 MG, UNK
     Route: 048

REACTIONS (11)
  - RENAL FAILURE [None]
  - PAIN [None]
  - UNEVALUABLE EVENT [None]
  - ANHEDONIA [None]
  - RENAL INJURY [None]
  - EMOTIONAL DISTRESS [None]
  - ANXIETY [None]
  - STRESS [None]
  - FEAR [None]
  - INJURY [None]
  - RENAL IMPAIRMENT [None]
